FAERS Safety Report 4866793-4 (Version None)
Quarter: 2005Q4

REPORT INFORMATION
  Report Type: 
  Country: None (occurrence: None)
  Receive Date: 20051222
  Receipt Date: 20051209
  Transmission Date: 20060501
  Serious: Yes (Other)
  Sender: FDA-Public Use
  Company Number: 2005170023

PATIENT
  Age: 57 Year
  Sex: Female

DRUGS (2)
  1. AROMASIN [Suspect]
     Indication: BREAST CANCER
     Dosage: 1 TABLET (DAILY) ORAL
     Route: 048
     Dates: start: 20050701
  2. BISOPROLOL FUMARATE AND HYDROCHLOROTHIAZIDE [Concomitant]

REACTIONS (7)
  - ARTHRALGIA [None]
  - ERYTHEMA [None]
  - HAEMANGIOMA [None]
  - HEPATIC STEATOSIS [None]
  - HOT FLUSH [None]
  - PARAESTHESIA [None]
  - TRANSAMINASES INCREASED [None]
